FAERS Safety Report 4627894-9 (Version None)
Quarter: 2005Q2

REPORT INFORMATION
  Report Type: 
  Country: None (occurrence: None)
  Receive Date: 20050404
  Receipt Date: 20050404
  Transmission Date: 20051028
  Serious: No
  Sender: FDA-Public Use
  Company Number: None

PATIENT
  Age: 27 Year
  Sex: Female
  Weight: 63.5036 kg

DRUGS (1)
  1. DEPO-PROVERA [Suspect]
     Indication: CONTRACEPTION
     Dosage: 1 DOSE EVERY 3 MONTHS
     Dates: start: 20020601, end: 20021001

REACTIONS (5)
  - BLADDER DISORDER [None]
  - ENDOMETRIOSIS [None]
  - INFERTILITY FEMALE [None]
  - OVARIAN CYST [None]
  - PAIN [None]
